FAERS Safety Report 23100502 (Version 1)
Quarter: 2023Q4

REPORT INFORMATION
  Report Type: Spontaneous
  Country: US (occurrence: US)
  Receive Date: 20231024
  Receipt Date: 20231024
  Transmission Date: 20240109
  Serious: Yes (Death, Other)
  Sender: FDA-Public Use
  Company Number: US-PFIZER INC-PV202300171644

PATIENT
  Age: 63 Year
  Sex: Male

DRUGS (2)
  1. INDOMETHACIN [Suspect]
     Active Substance: INDOMETHACIN
     Dosage: UNK
  2. COLCHICINE [Suspect]
     Active Substance: COLCHICINE
     Dosage: UNK

REACTIONS (5)
  - Drug ineffective [Fatal]
  - Syncope [Unknown]
  - Ventricular failure [Unknown]
  - Hypotension [Unknown]
  - Off label use [Unknown]
